FAERS Safety Report 13933317 (Version 1)
Quarter: 2017Q3

REPORT INFORMATION
  Report Type: Spontaneous
  Country: US (occurrence: US)
  Receive Date: 20170904
  Receipt Date: 20170904
  Transmission Date: 20171127
  Serious: Yes (Other)
  Sender: FDA-Public Use
  Company Number: US-JNJFOC-20170827697

PATIENT
  Sex: Male

DRUGS (1)
  1. BENADRYL ALLERGY [Suspect]
     Active Substance: DIPHENHYDRAMINE HYDROCHLORIDE
     Indication: ARTHROPOD STING
     Dosage: 2 CAPLETS
     Route: 048

REACTIONS (3)
  - Loss of consciousness [Unknown]
  - Chills [Unknown]
  - Product use in unapproved indication [Unknown]
